FAERS Safety Report 7347756-6 (Version None)
Quarter: 2011Q1

REPORT INFORMATION
  Report Type: 
  Country: None (occurrence: None)
  Receive Date: 20110222
  Receipt Date: 20101213
  Transmission Date: 20110831
  Serious: Yes (Other)
  Sender: FDA-Public Use
  Company Number: 2010027124

PATIENT
  Age: 63 Year
  Sex: Female

DRUGS (1)
  1. VIVAGLOBIN [Suspect]
     Indication: IMMUNODEFICIENCY COMMON VARIABLE

REACTIONS (5)
  - URTICARIA [None]
  - ASTHMA [None]
  - INFUSION SITE REACTION [None]
  - ANAPHYLACTIC REACTION [None]
  - SWELLING FACE [None]
